FAERS Safety Report 18981998 (Version 1)
Quarter: 2021Q1

REPORT INFORMATION
  Report Type: Spontaneous
  Country: GR (occurrence: GR)
  Receive Date: 20210308
  Receipt Date: 20210308
  Transmission Date: 20210420
  Serious: Yes (Life-Threatening)
  Sender: FDA-Public Use
  Company Number: GR-PFIZER INC-2021248211

PATIENT
  Sex: Male
  Weight: .9 kg

DRUGS (12)
  1. LINEZOLID. [Suspect]
     Active Substance: LINEZOLID
     Indication: NEUTROPENIA
     Dosage: UNK
  2. VANCOMYCIN [Suspect]
     Active Substance: VANCOMYCIN
     Indication: NEUTROPENIA
  3. VANCOMYCIN [Suspect]
     Active Substance: VANCOMYCIN
     Indication: BACTERIAL INFECTION
  4. LINEZOLID. [Suspect]
     Active Substance: LINEZOLID
     Indication: BACTERIAL INFECTION
  5. VANCOMYCIN [Suspect]
     Active Substance: VANCOMYCIN
     Indication: THROMBOCYTOPENIA
     Dosage: UNK
  6. MEROPENEM. [Suspect]
     Active Substance: MEROPENEM
     Indication: NEUTROPENIA
     Dosage: UNK
  7. MEROPENEM. [Suspect]
     Active Substance: MEROPENEM
     Indication: BACTERIAL INFECTION
  8. LINEZOLID. [Suspect]
     Active Substance: LINEZOLID
     Indication: THROMBOCYTOPENIA
  9. MEROPENEM. [Suspect]
     Active Substance: MEROPENEM
     Indication: THROMBOCYTOPENIA
  10. MEROPENEM. [Suspect]
     Active Substance: MEROPENEM
     Indication: SEPSIS NEONATAL
  11. LINEZOLID. [Suspect]
     Active Substance: LINEZOLID
     Indication: SEPSIS NEONATAL
  12. VANCOMYCIN [Suspect]
     Active Substance: VANCOMYCIN
     Indication: SEPSIS NEONATAL

REACTIONS (3)
  - Drug ineffective [Unknown]
  - General physical health deterioration [Unknown]
  - Off label use [Unknown]
